FAERS Safety Report 5757666-3 (Version None)
Quarter: 2008Q2

REPORT INFORMATION
  Report Type: 
  Country: None (occurrence: None)
  Receive Date: 20080603
  Receipt Date: 20080530
  Transmission Date: 20081010
  Serious: Yes (Other)
  Sender: FDA-Public Use
  Company Number: GB-MERCK-0806GBR00004

PATIENT
  Age: 60 Year
  Sex: Female

DRUGS (11)
  1. PROSCAR [Suspect]
     Indication: ALOPECIA
     Route: 065
     Dates: start: 20070501
  2. PROSCAR [Suspect]
     Indication: BLOOD TESTOSTERONE
     Route: 065
     Dates: start: 20070501
  3. AMLODIPINE BESYLATE [Concomitant]
     Route: 065
  4. ATENOLOL [Concomitant]
     Route: 065
  5. GLICLAZIDE [Concomitant]
     Route: 065
  6. METFORMIN [Concomitant]
     Route: 065
  7. RAMIPRIL [Concomitant]
     Route: 065
  8. RAMIPRIL [Concomitant]
     Route: 065
  9. SIMVASTATIN [Concomitant]
     Route: 065
  10. SPIRONOLACTONE [Concomitant]
     Route: 065
     Dates: start: 20070501, end: 20080201
  11. LEVOTHYROXINE SODIUM [Concomitant]
     Route: 065

REACTIONS (4)
  - ENDOMETRIAL HYPERTROPHY [None]
  - MENORRHAGIA [None]
  - MENSTRUATION IRREGULAR [None]
  - UTERINE CERVIX STENOSIS [None]
